FAERS Safety Report 23241122 (Version 1)
Quarter: 2023Q4

REPORT INFORMATION
  Report Type: Spontaneous
  Country: DK (occurrence: DK)
  Receive Date: 20231129
  Receipt Date: 20231129
  Transmission Date: 20240109
  Serious: Yes (Life-Threatening, Hospitalization, Other)
  Sender: FDA-Public Use
  Company Number: DK-BIOVITRUM-2023-DK-019160

PATIENT
  Age: 36 Year
  Sex: Male

DRUGS (4)
  1. EMAPALUMAB [Suspect]
     Active Substance: EMAPALUMAB
     Indication: Haemophagocytic lymphohistiocytosis
     Dates: start: 20231124
  2. EMAPALUMAB [Suspect]
     Active Substance: EMAPALUMAB
     Indication: Haemophagocytic lymphohistiocytosis
  3. ANAKINRA [Suspect]
     Active Substance: ANAKINRA
     Indication: Product used for unknown indication
     Dosage: 200 MG*2 DAILY
  4. ANAKINRA [Suspect]
     Active Substance: ANAKINRA
     Dosage: 100 MG*2 DAILY

REACTIONS (5)
  - Colitis [Unknown]
  - Gastrointestinal haemorrhage [Unknown]
  - Cardiac arrest [Recovered/Resolved]
  - Rash [Unknown]
  - Off label use [Unknown]

NARRATIVE: CASE EVENT DATE: 20231127
